FAERS Safety Report 9158420 (Version 1)
Quarter: 2013Q1

REPORT INFORMATION
  Report Type: Report from Study
  Country: US (occurrence: US)
  Receive Date: 20130312
  Receipt Date: 20130312
  Transmission Date: 20140127
  Serious: Yes (Life-Threatening, Hospitalization)
  Sender: FDA-Public Use
  Company Number: US-MILLENNIUM PHARMACEUTICALS, INC.-2012-08922

PATIENT
  Sex: Female

DRUGS (3)
  1. VELCADE [Suspect]
     Indication: ACUTE LEUKAEMIA
     Dosage: UNK
     Dates: start: 20120723, end: 20120728
  2. MITOXANTRONE [Suspect]
     Indication: ACUTE LEUKAEMIA
     Dosage: UNK
     Dates: start: 20120723, end: 20120728
  3. ETOPOSIDE [Suspect]
     Indication: ACUTE LEUKAEMIA
     Dosage: UNK
     Dates: start: 20120723, end: 20120728

REACTIONS (3)
  - Pericardial effusion [Unknown]
  - Neutrophil count decreased [Unknown]
  - Stomatitis [Unknown]
